FAERS Safety Report 7712407-5 (Version None)
Quarter: 2011Q3

REPORT INFORMATION
  Report Type: 
  Country: None (occurrence: None)
  Receive Date: 20110826
  Receipt Date: 20110815
  Transmission Date: 20111222
  Serious: Yes (Death, Hospitalization)
  Sender: FDA-Public Use
  Company Number: DE-ROCHE-798698

PATIENT
  Sex: Male
  Weight: 106.8 kg

DRUGS (1)
  1. INTERFERON ALFA-2A [Suspect]
     Indication: RENAL CELL CARCINOMA
     Route: 065
     Dates: start: 20110126, end: 20110330

REACTIONS (2)
  - PNEUMONIA [None]
  - PNEUMONITIS [None]
